FAERS Safety Report 5878127-7 (Version None)
Quarter: 2008Q3

REPORT INFORMATION
  Report Type: 
  Country: None (occurrence: None)
  Receive Date: 20080911
  Receipt Date: 20080903
  Transmission Date: 20090109
  Serious: Yes (Hospitalization)
  Sender: FDA-Public Use
  Company Number: PHHO2007SG02705

PATIENT
  Sex: Female
  Weight: 68.8 kg

DRUGS (1)
  1. TASIGNA [Suspect]
     Indication: CHRONIC MYELOID LEUKAEMIA
     Dosage: 800 MG, QD
     Route: 048
     Dates: start: 20061130

REACTIONS (4)
  - CHILLS [None]
  - ENTEROCOCCAL INFECTION [None]
  - SYNCOPE [None]
  - URINARY TRACT INFECTION [None]
